FAERS Safety Report 9894343 (Version 1)
Quarter: 2014Q1

REPORT INFORMATION
  Report Type: Spontaneous
  Country: US (occurrence: US)
  Receive Date: 20140213
  Receipt Date: 20140213
  Transmission Date: 20141002
  Serious: Yes (Other)
  Sender: FDA-Public Use
  Company Number: US-TEVA-462270USA

PATIENT
  Sex: Male

DRUGS (1)
  1. AMPHETAMINE W/DEXTROAMPHETAMINE [Suspect]

REACTIONS (3)
  - Autism [Unknown]
  - Personality disorder [Unknown]
  - Drug ineffective [Unknown]
